FAERS Safety Report 9768981 (Version 1)
Quarter: 2013Q3

REPORT INFORMATION
  Report Type: Spontaneous
  Country: US (occurrence: None)
  Receive Date: 20130828
  Receipt Date: 20130828
  Transmission Date: 20140515
  Serious: Yes (Hospitalization, Other)
  Sender: FDA-Public Use
  Company Number: TPA2011A06647

PATIENT
  Age: 76 Year
  Sex: Male
  Weight: 83.1 kg

DRUGS (3)
  1. PIOGLITAZONE HYDROCHLORIDE [Suspect]
     Indication: CARDIOVASCULAR EVENT PROPHYLAXIS
     Dates: start: 20090608, end: 20110615
  2. PLAVIX (CLOPIDOGREL BISULFATE) [Concomitant]
  3. SIMVACOR (SIMVASTATIN) [Concomitant]

REACTIONS (2)
  - Bladder transitional cell carcinoma [None]
  - Renal cyst [None]
